FAERS Safety Report 6706304-1 (Version None)
Quarter: 2010Q2

REPORT INFORMATION
  Report Type: 
  Country: None (occurrence: None)
  Receive Date: 20100430
  Receipt Date: 20100430
  Transmission Date: 20101027
  Serious: Yes (Hospitalization)
  Sender: FDA-Public Use
  Company Number: None

PATIENT
  Age: 63 Year
  Sex: Female
  Weight: 72.5755 kg

DRUGS (1)
  1. ABCIXIMAB [Suspect]
     Indication: ACUTE MYOCARDIAL INFARCTION
     Dosage: 18.2 MG IV BOLUS
     Route: 040

REACTIONS (4)
  - ACUTE MYOCARDIAL INFARCTION [None]
  - MIDDLE INSOMNIA [None]
  - PLATELET COUNT DECREASED [None]
  - THROMBOSIS IN DEVICE [None]
